FAERS Safety Report 8212086-7 (Version None)
Quarter: 2012Q1

REPORT INFORMATION
  Report Type: 
  Country: None (occurrence: None)
  Receive Date: 20120315
  Receipt Date: 20120312
  Transmission Date: 20120608
  Serious: Yes (Death, Hospitalization, Other)
  Sender: FDA-Public Use
  Company Number: PHEH2012US004272

PATIENT
  Sex: Female
  Weight: 48.5 kg

DRUGS (2)
  1. CHEMOTHERAPEUTICS [Concomitant]
     Indication: LUNG NEOPLASM MALIGNANT
  2. AFINITOR [Suspect]
     Indication: ABDOMINAL PAIN
     Dosage: 5 MG, DAILY
     Route: 048
     Dates: start: 20120213

REACTIONS (5)
  - OEDEMA PERIPHERAL [None]
  - CARDIAC ARREST [None]
  - CARDIAC DISORDER [None]
  - HYPERTENSION [None]
  - ATRIAL FIBRILLATION [None]
